FAERS Safety Report 8540317-2 (Version None)
Quarter: 2012Q3

REPORT INFORMATION
  Report Type: 
  Country: None (occurrence: None)
  Receive Date: 20120726
  Receipt Date: 20120710
  Transmission Date: 20120928
  Serious: Yes (Other)
  Sender: FDA-Public Use
  Company Number: SE-ROCHE-1092689

PATIENT
  Age: 61 Year
  Sex: Male

DRUGS (8)
  1. PEGASYS [Suspect]
     Indication: HEPATITIS C
     Route: 058
     Dates: start: 20120425, end: 20120709
  2. PRIMPERAN (SWEDEN) [Concomitant]
     Indication: NAUSEA
     Route: 048
  3. IMOVANE [Concomitant]
     Indication: INSOMNIA
     Route: 048
  4. COPEGUS [Suspect]
     Indication: HEPATITIS C
     Route: 048
     Dates: start: 20120425, end: 20120709
  5. CETIRIZINE HCL [Concomitant]
     Indication: PRURITUS
     Route: 048
  6. CLEMASTINE FUMARATE [Concomitant]
     Indication: PRURITUS
     Route: 048
  7. TELAPREVIR [Suspect]
     Indication: HEPATITIS C
     Route: 048
     Dates: start: 20120425, end: 20120709
  8. CITALOPRAM [Concomitant]
     Indication: DEPRESSION
     Route: 048
     Dates: start: 20120413

REACTIONS (1)
  - ASCITES [None]
